FAERS Safety Report 9741085 (Version 1)
Quarter: 2013Q4

REPORT INFORMATION
  Report Type: Spontaneous
  Country: US (occurrence: US)
  Receive Date: 20131209
  Receipt Date: 20131209
  Transmission Date: 20140711
  Serious: No
  Sender: FDA-Public Use
  Company Number: US-GILEAD-2009-0024238

PATIENT
  Age: 68 Week
  Sex: Male

DRUGS (1)
  1. HEPSERA [Suspect]
     Dates: start: 200202

REACTIONS (2)
  - Abdominal pain [Unknown]
  - Product odour abnormal [Unknown]
